FAERS Safety Report 5887340-4 (Version None)
Quarter: 2008Q3

REPORT INFORMATION
  Report Type: 
  Country: None (occurrence: None)
  Receive Date: 20080918
  Receipt Date: 20080908
  Transmission Date: 20090109
  Serious: Yes (Hospitalization)
  Sender: FDA-Public Use
  Company Number: US-JNJFOC-20080500844

PATIENT
  Sex: Female
  Weight: 79.92 kg

DRUGS (41)
  1. LEVAQUIN [Suspect]
     Indication: SEPSIS
     Route: 042
  2. LEVAQUIN [Suspect]
     Indication: URINARY TRACT INFECTION
     Route: 042
  3. LEVAQUIN [Suspect]
     Indication: KIDNEY INFECTION
     Route: 042
  4. LEVAQUIN [Suspect]
     Route: 048
  5. LEVAQUIN [Suspect]
     Route: 048
  6. LEVAQUIN [Suspect]
     Route: 048
  7. VERAPAMIL [Interacting]
     Indication: BLOOD PRESSURE
     Dosage: HALF TABLET
     Route: 048
  8. DYAZIDE [Concomitant]
     Indication: HYPERTENSION
     Route: 048
  9. DYAZIDE [Concomitant]
     Indication: DIURETIC THERAPY
     Route: 048
  10. FEMAKA [Concomitant]
     Indication: BREAST CANCER
  11. ASPIRIN [Concomitant]
     Indication: ANTICOAGULANT THERAPY
  12. CALCIUM [Concomitant]
     Indication: NUTRITIONAL SUPPORT
  13. FEMARA [Concomitant]
  14. METFORMIN HCL [Concomitant]
     Route: 048
  15. ASPIRIN [Concomitant]
     Indication: ANTICOAGULANT THERAPY
     Route: 048
  16. CIPROFLOXACIN [Concomitant]
  17. PRILOSEC [Concomitant]
  18. MECLIZINE [Concomitant]
     Indication: VERTIGO
     Route: 048
  19. COLACE [Concomitant]
     Indication: DIARRHOEA
     Route: 048
  20. PROTONIX [Concomitant]
     Indication: GASTROINTESTINAL DISORDER THERAPY
     Route: 048
  21. ZOLPIDEM [Concomitant]
     Indication: INSOMNIA
     Dosage: NIGHTLY
     Route: 048
  22. CALCIUM SUPPLEMENT [Concomitant]
     Route: 048
  23. MULTI-VITAMIN [Concomitant]
     Route: 048
  24. LIDOCAINE 1% [Concomitant]
  25. ANCEF [Concomitant]
     Route: 042
  26. FENTANYL CITRATE [Concomitant]
     Indication: DRUG USE FOR UNKNOWN INDICATION
     Route: 042
  27. AMIODARONE HCL [Concomitant]
     Route: 042
  28. ADENOSINE [Concomitant]
     Route: 042
  29. ATROPINE SULPHATE [Concomitant]
     Route: 042
  30. CORTROSYN [Concomitant]
     Route: 042
  31. DOPAMINE HCL [Concomitant]
     Dosage: AS NEEDED
     Route: 042
  32. SOLU-CORTEF [Concomitant]
     Route: 042
  33. MIDAZOLAM HCL [Concomitant]
     Route: 050
  34. INSULIN REGULAR HUMA [Concomitant]
     Dosage: 2-9 UNIT
     Route: 058
  35. SODIUM BICARBONATE [Concomitant]
     Route: 042
  36. TYLENOL (CAPLET) [Concomitant]
     Route: 048
  37. MAGNESIUM SULFATE [Concomitant]
     Route: 042
  38. MORPHINE SULFATE [Concomitant]
     Route: 042
  39. METOCLOPRAMIDE [Concomitant]
     Route: 042
  40. ONDANSETRON [Concomitant]
     Route: 042
  41. DEXAMETHASONE [Concomitant]
     Route: 042

REACTIONS (13)
  - ADAMS-STOKES SYNDROME [None]
  - ATRIOVENTRICULAR BLOCK [None]
  - BLOOD GLUCOSE INCREASED [None]
  - BLOOD PRESSURE INCREASED [None]
  - CAROTID ARTERY STENOSIS [None]
  - DRUG INTERACTION [None]
  - FALL [None]
  - LEFT VENTRICULAR HYPERTROPHY [None]
  - OEDEMA PERIPHERAL [None]
  - PULMONARY ARTERIAL PRESSURE INCREASED [None]
  - RIB FRACTURE [None]
  - TENDON DISORDER [None]
  - TRICUSPID VALVE INCOMPETENCE [None]
